FAERS Safety Report 7073339-1 (Version None)
Quarter: 2010Q4

REPORT INFORMATION
  Report Type: 
  Country: None (occurrence: None)
  Receive Date: 20101029
  Receipt Date: 20100604
  Transmission Date: 20110411
  Serious: No
  Sender: FDA-Public Use
  Company Number: A0863081A

PATIENT
  Age: 53 Year
  Sex: Female

DRUGS (10)
  1. ADVAIR DISKUS 100/50 [Suspect]
     Indication: ASTHMA
     Dosage: 1PUFF TWICE PER DAY
     Route: 055
     Dates: start: 20000101
  2. FLOVENT [Suspect]
     Indication: ASTHMA
     Dosage: 2PUFF TWICE PER DAY
     Route: 055
  3. NORVASC [Concomitant]
  4. PREMPRO [Concomitant]
  5. HYDROCODONE [Concomitant]
  6. CYCLOBENZAPRINE [Concomitant]
  7. CLONAZEPAM [Concomitant]
  8. LIDODERM [Concomitant]
  9. IMITREX [Concomitant]
  10. ALBUTEROL [Concomitant]

REACTIONS (5)
  - BREATH ODOUR [None]
  - DRUG INEFFECTIVE [None]
  - DRY MOUTH [None]
  - DYSPHONIA [None]
  - PALPITATIONS [None]
